FAERS Safety Report 5489368-5 (Version None)
Quarter: 2007Q4

REPORT INFORMATION
  Report Type: 
  Country: None (occurrence: None)
  Receive Date: 20071018
  Receipt Date: 20071010
  Transmission Date: 20080405
  Serious: Yes (Other)
  Sender: FDA-Public Use
  Company Number: US-ASTRAZENECA-2007UW23600

PATIENT
  Age: 68 Year
  Sex: Female
  Weight: 78.9 kg

DRUGS (1)
  1. ARIMIDEX [Suspect]
     Indication: BREAST CANCER
     Route: 048
     Dates: start: 20070601

REACTIONS (4)
  - BONE DENSITY DECREASED [None]
  - FATIGUE [None]
  - GAIT DISTURBANCE [None]
  - PAIN [None]
